FAERS Safety Report 5213578-5 (Version None)
Quarter: 2007Q1

REPORT INFORMATION
  Report Type: 
  Country: None (occurrence: None)
  Receive Date: 20070119
  Receipt Date: 20070110
  Transmission Date: 20070707
  Serious: Yes (Other)
  Sender: FDA-Public Use
  Company Number: ES-SHR-ES-2006-028746

PATIENT
  Age: 52 Year
  Sex: Female

DRUGS (2)
  1. ANGELIQ [Suspect]
     Dosage: 1 TAB(S), UNK
     Route: 048
     Dates: start: 20040101
  2. NAPROXEN [Suspect]
     Dosage: UNK TAB(S), OTHER
     Route: 048
     Dates: start: 19950101

REACTIONS (9)
  - BLOOD PRESSURE DIASTOLIC DECREASED [None]
  - GENERALISED ERYTHEMA [None]
  - LARYNGEAL OEDEMA [None]
  - LIP OEDEMA [None]
  - NAUSEA [None]
  - PRURITUS [None]
  - SPEECH DISORDER [None]
  - URTICARIA LOCALISED [None]
  - VISION BLURRED [None]
